FAERS Safety Report 6294938-0 (Version None)
Quarter: 2009Q3

REPORT INFORMATION
  Report Type: 
  Country: None (occurrence: None)
  Receive Date: 20090731
  Receipt Date: 20090731
  Transmission Date: 20100115
  Serious: Yes (Other)
  Sender: FDA-Public Use
  Company Number: None

PATIENT
  Age: 71 Year
  Sex: Female
  Weight: 77.5651 kg

DRUGS (1)
  1. CRESTOR [Suspect]
     Indication: BLOOD CHOLESTEROL INCREASED
     Dosage: 1, DAILY, PO
     Route: 048
     Dates: start: 20040401, end: 20090708

REACTIONS (5)
  - ARTHRALGIA [None]
  - FATIGUE [None]
  - GASTRIC DISORDER [None]
  - MALAISE [None]
  - MUSCULAR WEAKNESS [None]
